FAERS Safety Report 7308214-8 (Version None)
Quarter: 2011Q1

REPORT INFORMATION
  Report Type: 
  Country: None (occurrence: None)
  Receive Date: 20110211
  Receipt Date: 20110119
  Transmission Date: 20110831
  Serious: Yes (Other)
  Sender: FDA-Public Use
  Company Number: 2011SP002066

PATIENT
  Age: 43 Year
  Sex: Male
  Weight: 79 kg

DRUGS (9)
  1. LUVOX [Suspect]
     Indication: DEPRESSION
     Dosage: 50 MG;PO
     Route: 048
  2. ESTAZOLAM [Suspect]
     Indication: DEPRESSION
     Dosage: 2 MG;PO
     Route: 048
  3. ATROPINE SULFATE [Suspect]
     Indication: ANAESTHETIC PREMEDICATION
     Dosage: 0.5 MG;IV
     Route: 042
     Dates: start: 20100708, end: 20100708
  4. PENTAZOCINE LACTATE [Suspect]
     Indication: ANAESTHETIC PREMEDICATION
     Dosage: 15 MG;IV
     Route: 042
     Dates: start: 20100708, end: 20100708
  5. PROPOFOL [Suspect]
     Indication: GENERAL ANAESTHESIA
     Dosage: 200 MG;IV
     Route: 042
     Dates: start: 20100708, end: 20100708
  6. ALLOPURINOL [Suspect]
     Indication: GOUT
     Dosage: 100 MG;PO
     Route: 048
     Dates: end: 20100707
  7. ESLAX (ROCURONIUM BROMIDE/ 01245702/) [Suspect]
     Indication: NEUROMUSCULAR BLOCKING THERAPY
     Dosage: 40 MG;IV
     Route: 042
     Dates: start: 20100708, end: 20100708
  8. SEVOFLURANE [Suspect]
     Indication: GENERAL ANAESTHESIA
     Dosage: 4 PCT;INH
     Route: 055
     Dates: start: 20100708, end: 20100708
  9. NITROUS OXIDE W/ OXYGEN [Suspect]
     Indication: GENERAL ANAESTHESIA
     Dosage: 120 L;QH;INH
     Route: 055
     Dates: start: 20100708, end: 20100708

REACTIONS (1)
  - RHABDOMYOLYSIS [None]
